FAERS Safety Report 8596851-2 (Version None)
Quarter: 2012Q3

REPORT INFORMATION
  Report Type: 
  Country: None (occurrence: None)
  Receive Date: 20120815
  Receipt Date: 20120803
  Transmission Date: 20120928
  Serious: Yes (Other)
  Sender: FDA-Public Use
  Company Number: CHPA2012US017625

PATIENT
  Age: 64 Year
  Sex: Female

DRUGS (1)
  1. MYOFLEX ANALGESIC CREME [Suspect]
     Indication: PAIN
     Dosage: A PINCH, PRN
     Route: 061

REACTIONS (2)
  - BONE DISORDER [None]
  - GAIT DISTURBANCE [None]
